FAERS Safety Report 6709864-X (Version None)
Quarter: 2010Q2

REPORT INFORMATION
  Report Type: 
  Country: None (occurrence: None)
  Receive Date: 20100504
  Receipt Date: 20100426
  Transmission Date: 20101027
  Serious: Yes (Other)
  Sender: FDA-Public Use
  Company Number: US-JNJCH-2010010227

PATIENT
  Age: 54 Year
  Sex: Male
  Weight: 87.1 kg

DRUGS (5)
  1. LISTERINE WHITENING QUICK DISSOLVING STRIPS [Suspect]
     Indication: DENTAL CARE
     Dosage: TEXT:STRIPS ON TOP AND BOTTOM 2 TIMES
     Route: 048
     Dates: start: 20100426, end: 20100426
  2. HYZAAR [Concomitant]
     Indication: HYPERTENSION
     Dosage: TEXT:100/25MG 1X A DAY
     Route: 065
  3. TOPROL-XL [Concomitant]
     Indication: HYPERTENSION
     Dosage: TEXT:50MG 1X A DAY
     Route: 065
  4. AMLODIPINE [Concomitant]
     Indication: HYPERTENSION
     Dosage: TEXT:10MG 1X A DAY
     Route: 065
  5. ACETYLSALICYLIC ACID [Concomitant]
     Indication: BLOOD DISORDER
     Dosage: TEXT:81MG 1X A DAY
     Route: 065

REACTIONS (4)
  - APPLICATION SITE BURN [None]
  - APPLICATION SITE DISCOLOURATION [None]
  - GINGIVAL BLEEDING [None]
  - PRODUCT QUALITY ISSUE [None]
